FAERS Safety Report 9707706 (Version 1)
Quarter: 2013Q4

REPORT INFORMATION
  Report Type: Spontaneous
  Country: US (occurrence: None)
  Receive Date: 20131122
  Receipt Date: 20131122
  Transmission Date: 20140711
  Serious: Yes (Life-Threatening, Hospitalization)
  Sender: FDA-Public Use
  Company Number: None

PATIENT
  Age: 48 Year
  Sex: Female
  Weight: 90.72 kg

DRUGS (1)
  1. VICTOZA [Suspect]
     Indication: TYPE 2 DIABETES MELLITUS
     Dosage: VICTOZA PEN ONCE DAILY GIVEN INTO/UNDER THE SKIN
     Route: 058
     Dates: start: 20130509, end: 20131009

REACTIONS (2)
  - Papillary thyroid cancer [None]
  - Follicular thyroid cancer [None]
